FAERS Safety Report 10490026 (Version 1)
Quarter: 2014Q4

REPORT INFORMATION
  Report Type: Spontaneous
  Country: US (occurrence: US)
  Receive Date: 20141002
  Receipt Date: 20141002
  Transmission Date: 20150528
  Serious: Yes (Other)
  Sender: FDA-Public Use
  Company Number: US-BAYER-2014-144030

PATIENT
  Age: 59 Year
  Sex: Female
  Weight: 46.8 kg

DRUGS (10)
  1. VINBLASTINE [Suspect]
     Active Substance: VINBLASTINE
     Indication: HODGKIN^S DISEASE RECURRENT
     Dosage: ABVD CHEMOTHERAPY
     Dates: start: 1997
  2. DTIC-DOME [Suspect]
     Active Substance: DACARBAZINE
     Indication: HODGKIN^S DISEASE RECURRENT
     Dosage: ABVD CHEMOTHERAPY
     Dates: start: 1997
  3. AMLODIPINE [Concomitant]
     Active Substance: AMLODIPINE BESYLATE
  4. ADRIAMYCIN [Suspect]
     Active Substance: DOXORUBICIN HYDROCHLORIDE
     Indication: HODGKIN^S DISEASE RECURRENT
     Dosage: ABVD CHEMOTHERAPY
     Dates: start: 1997
  5. BLEOMYCIN [Suspect]
     Active Substance: BLEOMYCIN SULFATE
     Indication: HODGKIN^S DISEASE RECURRENT
     Dosage: ABVD CHEMOTHERAPY
     Dates: start: 1997
  6. FOLATE SODIUM [Concomitant]
     Active Substance: FOLATE SODIUM
  7. LEVOTHYROXINE [Concomitant]
     Active Substance: LEVOTHYROXINE
  8. ESTRADIOL. [Concomitant]
     Active Substance: ESTRADIOL
  9. METOPROLOL [Concomitant]
     Active Substance: METOPROLOL
  10. PROGESTERONE. [Concomitant]
     Active Substance: PROGESTERONE

REACTIONS (5)
  - Hypercalcaemia [None]
  - Renal impairment [None]
  - Proteinuria [None]
  - Heavy chain disease [None]
  - Tubulointerstitial nephritis [None]
